FAERS Safety Report 4890035-7 (Version None)
Quarter: 2006Q1

REPORT INFORMATION
  Report Type: 
  Country: None (occurrence: None)
  Receive Date: 20060123
  Receipt Date: 20060112
  Transmission Date: 20060701
  Serious: Yes (Hospitalization)
  Sender: FDA-Public Use
  Company Number: 2006006531

PATIENT
  Age: 52 Year
  Sex: Female
  Weight: 92.9874 kg

DRUGS (5)
  1. ZANTAC [Suspect]
     Indication: DYSPEPSIA
     Dosage: 1 TABLET TWICE A DAY, ORAL
     Route: 048
     Dates: start: 20060101, end: 20060109
  2. PHENYTOIN SODIUM [Concomitant]
  3. ASPIRIN [Concomitant]
  4. LINSINOPRIL (LISINOPRIL) [Concomitant]
  5. SIMVASTATIN [Concomitant]

REACTIONS (2)
  - ANTICONVULSANT DRUG LEVEL BELOW THERAPEUTIC [None]
  - GRAND MAL CONVULSION [None]
